FAERS Safety Report 9284725 (Version 4)
Quarter: 2013Q3

REPORT INFORMATION
  Report Type: Spontaneous
  Country: US (occurrence: US)
  Receive Date: 20130513
  Receipt Date: 20130820
  Transmission Date: 20140515
  Serious: Yes (Other)
  Sender: FDA-Public Use
  Company Number: US-BIOGENIDEC-2013BI040448

PATIENT
  Age: 23 Year
  Sex: Male

DRUGS (8)
  1. AVONEX [Suspect]
     Indication: MULTIPLE SCLEROSIS
     Route: 030
  2. AVONEX [Suspect]
     Indication: MULTIPLE SCLEROSIS
     Route: 030
     Dates: start: 20130415
  3. AVONEX [Suspect]
     Indication: MULTIPLE SCLEROSIS
     Route: 030
  4. AVONEX [Suspect]
     Indication: MULTIPLE SCLEROSIS
     Route: 030
  5. AVONEX [Suspect]
     Indication: MULTIPLE SCLEROSIS
     Route: 030
     Dates: start: 20130423, end: 20130521
  6. IBUPROFEN [Concomitant]
     Indication: PREMEDICATION
     Route: 048
     Dates: start: 201304
  7. ALEVE [Concomitant]
     Indication: PREMEDICATION
  8. BENADRYL [Concomitant]
     Indication: PREMEDICATION

REACTIONS (3)
  - Pyrexia [Recovered/Resolved]
  - Pain [Recovered/Resolved]
  - Influenza like illness [Not Recovered/Not Resolved]
